FAERS Safety Report 5009362-8 (Version None)
Quarter: 2006Q2

REPORT INFORMATION
  Report Type: 
  Country: None (occurrence: None)
  Receive Date: 20060524
  Receipt Date: 20060519
  Transmission Date: 20061013
  Serious: Yes (Other)
  Sender: FDA-Public Use
  Company Number: US-JNJFOC-20060504863

PATIENT
  Sex: Female

DRUGS (6)
  1. FENTANYL TRANSDERMAL SYSTEM [Suspect]
     Route: 062
  2. ZOLOFT [Concomitant]
     Indication: DEPRESSION
     Dosage: TAKES 150MG EVERY DAY. WHICH IS 1NAD HALF TABLETS.
     Route: 048
  3. HYDROCODONE [Concomitant]
     Indication: PAIN
     Dosage: 10 MG HYDROCODONE/325 MG ACETAMINOPHEN, 1 EVERY 4-6 HOURS, ORAL
     Route: 048
  4. AMBIEN [Concomitant]
     Indication: SLEEP DISORDER
     Route: 048
  5. LORAZEPAM [Concomitant]
     Indication: ANXIETY
     Route: 048
  6. MAXALT [Concomitant]
     Indication: MIGRAINE
     Route: 048

REACTIONS (1)
  - CONVULSION [None]
